FAERS Safety Report 8791000 (Version 1)
Quarter: 2012Q4

REPORT INFORMATION
  Report Type: Spontaneous
  Country: US (occurrence: None)
  Receive Date: 20120907
  Receipt Date: 20120907
  Transmission Date: 20130627
  Serious: No
  Sender: FDA-Public Use
  Company Number: 2012-00152

PATIENT
  Age: 30 Year
  Sex: Male

DRUGS (1)
  1. ZICAM EXTREME CONGESTION RELIEF [Suspect]
     Indication: NASAL CONGESTION
     Dosage: 1 spray each nostril daily
     Route: 045
     Dates: start: 201204, end: 201207

REACTIONS (3)
  - Anosmia [None]
  - Nerve injury [None]
  - Drug ineffective [None]
